FAERS Safety Report 10143563 (Version 1)
Quarter: 2014Q2

REPORT INFORMATION
  Report Type: Spontaneous
  Country: US (occurrence: None)
  Receive Date: 20140429
  Receipt Date: 20140429
  Transmission Date: 20141212
  Serious: Yes (Hospitalization)
  Sender: FDA-Public Use
  Company Number: None

PATIENT
  Age: 25 Year
  Sex: Male
  Weight: 64 kg

DRUGS (5)
  1. CUBICIN [Suspect]
     Indication: STAPHYLOCOCCAL INFECTION
     Route: 042
     Dates: start: 20140401, end: 20140422
  2. CUBICIN [Suspect]
     Indication: SEPTIC EMBOLUS
     Route: 042
     Dates: start: 20140401, end: 20140422
  3. CUBICIN [Suspect]
     Indication: ENDOCARDITIS
     Route: 042
     Dates: start: 20140401, end: 20140422
  4. RIFAMYCIN [Concomitant]
  5. VANCOMYCIN [Concomitant]

REACTIONS (1)
  - Eosinophilic pneumonia [None]
